FAERS Safety Report 10969890 (Version 1)
Quarter: 2015Q1

REPORT INFORMATION
  Report Type: Spontaneous
  Country: US (occurrence: None)
  Receive Date: 20150330
  Receipt Date: 20150330
  Transmission Date: 20150721
  Serious: Yes (Other)
  Sender: FDA-Public Use
  Company Number: None

PATIENT
  Age: 37 Year
  Sex: Female
  Weight: 74.84 kg

DRUGS (4)
  1. B VITAMINS [Concomitant]
     Active Substance: CYANOCOBALAMIN\DEXPANTHENOL\NIACINAMIDE\PYRIDOXINE HYDROCHLORIDE\RIBOFLAVIN 5^-PHOSPHATE SODIUM\THIAMINE HYDROCHLORIDE\VITAMIN B COMPLEX
  2. VENTOLIN [Concomitant]
     Active Substance: ALBUTEROL SULFATE
  3. MULTI VITAMIN [Concomitant]
     Active Substance: VITAMINS
  4. PERMETHRIN. [Suspect]
     Active Substance: PERMETHRIN
     Indication: ACARODERMATITIS
     Dosage: ONCE FROM NECK TO SOLESOF FEET, AT BEDTIME, APPLIED TO A SURFACE, USUALLY THE SKIN
     Dates: start: 20150326, end: 20150327

REACTIONS (6)
  - Nausea [None]
  - Dizziness [None]
  - Vomiting [None]
  - Malaise [None]
  - Heart rate increased [None]
  - Gait disturbance [None]

NARRATIVE: CASE EVENT DATE: 20150327
